FAERS Safety Report 26083975 (Version 1)
Quarter: 2025Q4

REPORT INFORMATION
  Report Type: Report from Study
  Country: US (occurrence: US)
  Receive Date: 20251124
  Receipt Date: 20251124
  Transmission Date: 20260118
  Serious: Yes (Other)
  Sender: JAZZ
  Company Number: US-JAZZ PHARMACEUTICALS-2025-US-026215

PATIENT
  Age: 31 Year
  Sex: Female

DRUGS (4)
  1. XYWAV [Suspect]
     Active Substance: CALCIUM OXYBATE\MAGNESIUM OXYBATE\POTASSIUM OXYBATE\SODIUM OXYBATE
     Indication: Narcolepsy
     Dosage: 2.25 GRAM, BID
  2. XYWAV [Suspect]
     Active Substance: CALCIUM OXYBATE\MAGNESIUM OXYBATE\POTASSIUM OXYBATE\SODIUM OXYBATE
     Dosage: 3 GRAM, BID
  3. XYWAV [Suspect]
     Active Substance: CALCIUM OXYBATE\MAGNESIUM OXYBATE\POTASSIUM OXYBATE\SODIUM OXYBATE
     Dosage: FIRST DOSE 3 GRAM AND SECOND DOSE 2.5 GRAM
  4. MELOXICAM [Concomitant]
     Active Substance: MELOXICAM
     Indication: Product used for unknown indication

REACTIONS (7)
  - Rectal haemorrhage [Not Recovered/Not Resolved]
  - Gait disturbance [Recovered/Resolved]
  - Head injury [Recovered/Resolved]
  - Nocturia [Recovered/Resolved]
  - Somnolence [Recovered/Resolved]
  - Back pain [Unknown]
  - Constipation [Unknown]

NARRATIVE: CASE EVENT DATE: 20251114
